FAERS Safety Report 9312073 (Version 2)
Quarter: 2013Q3

REPORT INFORMATION
  Report Type: Report from Study
  Country: US (occurrence: US)
  Receive Date: 20130528
  Receipt Date: 20130719
  Transmission Date: 20140515
  Serious: Yes (Other)
  Sender: FDA-Public Use
  Company Number: US-ABBOTT-13P-163-1094871-00

PATIENT
  Age: 40 Year
  Sex: Male

DRUGS (8)
  1. HUMIRA [Suspect]
     Indication: PSORIASIS
     Dates: start: 200911
  2. HUMIRA [Suspect]
     Dates: start: 20130521
  3. FISH OIL [Concomitant]
     Indication: PRODUCT USED FOR UNKNOWN INDICATION
  4. GLUCOSAMINE [Concomitant]
     Indication: PRODUCT USED FOR UNKNOWN INDICATION
  5. OMEPRAZOLE [Concomitant]
     Indication: PRODUCT USED FOR UNKNOWN INDICATION
  6. CLOBETASOL CREAM [Concomitant]
     Indication: PRODUCT USED FOR UNKNOWN INDICATION
  7. FLUOCINIMIDE CREAM [Concomitant]
     Indication: PRODUCT USED FOR UNKNOWN INDICATION
  8. CLOBETASOL [Concomitant]
     Indication: PRODUCT USED FOR UNKNOWN INDICATION

REACTIONS (2)
  - Intervertebral disc protrusion [Recovered/Resolved]
  - Incorrect dose administered [Recovered/Resolved]
